FAERS Safety Report 7691106-2 (Version None)
Quarter: 2011Q3

REPORT INFORMATION
  Report Type: 
  Country: None (occurrence: None)
  Receive Date: 20110815
  Receipt Date: 20110805
  Transmission Date: 20111222
  Serious: Yes (Hospitalization, Other)
  Sender: FDA-Public Use
  Company Number: WAES 1108USA00846

PATIENT
  Age: 65 Year
  Sex: Female
  Weight: 73.0291 kg

DRUGS (6)
  1. ZOFRAN [Concomitant]
  2. CAP VORINOSTAT 100 MG [Suspect]
     Indication: BREAST CANCER
     Dosage: 300 MG/DAILY/PO
     Route: 048
     Dates: start: 20110620
  3. IXABEPILONE UNK [Suspect]
     Indication: BREAST CANCER
     Dosage: 30 MG/DAILY/IV
     Route: 042
     Dates: start: 20110620
  4. EFFEXOR [Concomitant]
  5. TOPROL-XL [Concomitant]
  6. LOSARTAN POTASSIUM [Concomitant]

REACTIONS (4)
  - PNEUMONITIS [None]
  - NAUSEA [None]
  - VOMITING [None]
  - PYREXIA [None]
